FAERS Safety Report 4634526-2 (Version None)
Quarter: 2005Q2

REPORT INFORMATION
  Report Type: 
  Country: None (occurrence: None)
  Receive Date: 20050411
  Receipt Date: 20050404
  Transmission Date: 20051028
  Serious: Yes (Life-Threatening)
  Sender: FDA-Public Use
  Company Number: 2005GB00663

PATIENT
  Age: 74 Year
  Sex: Male

DRUGS (5)
  1. CRESTOR [Suspect]
     Indication: BLOOD CHOLESTEROL INCREASED
     Dosage: 20 MG QD PO
     Route: 048
     Dates: start: 20040501, end: 20050301
  2. IRBESARTAN [Concomitant]
  3. PERINDOPRIL [Concomitant]
  4. AVANDAMET [Concomitant]
  5. AMLODIPINE [Concomitant]

REACTIONS (3)
  - DYSPNOEA [None]
  - MITRAL VALVE STENOSIS [None]
  - RENAL FAILURE ACUTE [None]
